FAERS Safety Report 7690905-0 (Version None)
Quarter: 2011Q3

REPORT INFORMATION
  Report Type: 
  Country: None (occurrence: None)
  Receive Date: 20110812
  Receipt Date: 20110708
  Transmission Date: 20111222
  Serious: Yes (Other)
  Sender: FDA-Public Use
  Company Number: GER/UKI/11/0018742

PATIENT
  Age: 87 Year
  Sex: Female

DRUGS (10)
  1. CALCIUM CARBONATE [Concomitant]
  2. CANDESARTAN CILEXETIL [Concomitant]
  3. WARFARIN SODIUM [Concomitant]
  4. TERBINAFINE HCL [Suspect]
     Indication: INTERTRIGO CANDIDA
     Dosage: 250 MG, 1 IN 1 D, ORAL
     Route: 048
  5. ALENDRONATE SODIUM [Concomitant]
  6. ASPIRIN [Concomitant]
  7. LOPERAMIDE [Concomitant]
  8. FUROSEMIDE [Concomitant]
  9. BISOPROLOL FUMARATE [Concomitant]
  10. OMEPRAZOLE [Concomitant]

REACTIONS (2)
  - ACUTE GENERALISED EXANTHEMATOUS PUSTULOSIS [None]
  - MALAISE [None]
